FAERS Safety Report 14738390 (Version 3)
Quarter: 2018Q2

REPORT INFORMATION
  Report Type: Spontaneous
  Country: CN (occurrence: CN)
  Receive Date: 20180409
  Receipt Date: 20180525
  Transmission Date: 20180711
  Serious: Yes (Other)
  Sender: FDA-Public Use
  Company Number: CN-ALLERGAN-1819479US

PATIENT
  Age: 95 Year
  Sex: Male

DRUGS (11)
  1. FINASTERIDE. [Concomitant]
     Active Substance: FINASTERIDE
     Dosage: 2 DF, QD
     Route: 048
     Dates: start: 20150324, end: 20150418
  2. CALCIUM CARBONATE. [Concomitant]
     Active Substance: CALCIUM CARBONATE
     Route: 048
     Dates: start: 20150413, end: 20150420
  3. OLANZAPINE. [Concomitant]
     Active Substance: OLANZAPINE
     Dosage: 1 DF, BID
     Route: 048
     Dates: start: 20150409, end: 20150422
  4. ESCITALOPRAM OXALATE - BP [Suspect]
     Active Substance: ESCITALOPRAM OXALATE
     Indication: PRODUCT USED FOR UNKNOWN INDICATION
     Dosage: 10 MG, QD
     Route: 048
     Dates: start: 20150410, end: 20150417
  5. AMBROXOL HYDROCHLORIDE [Concomitant]
     Active Substance: AMBROXOL HYDROCHLORIDE
     Dosage: 1 DF, QD
     Route: 048
     Dates: start: 20150415, end: 20150422
  6. CEFUROXIME SODIUM. [Suspect]
     Active Substance: CEFUROXIME SODIUM
     Indication: PRODUCT USED FOR UNKNOWN INDICATION
     Dosage: 1.5 G, Q8HR
     Route: 048
     Dates: start: 20150415, end: 20150417
  7. NIFEDIPINE. [Concomitant]
     Active Substance: NIFEDIPINE
     Indication: BLOOD PRESSURE MEASUREMENT
     Dosage: 1 DF, QD
     Route: 048
     Dates: start: 20150408, end: 20150416
  8. CEFUROXIME. [Suspect]
     Active Substance: CEFUROXIME
     Indication: PRODUCT USED FOR UNKNOWN INDICATION
     Dosage: 0.75 G, Q8HR
     Route: 042
     Dates: start: 20150413, end: 20150417
  9. TRIMETAZIDINE DIHYDROCHLORIDE [Concomitant]
     Active Substance: TRIMETAZIDINE DIHYDROCHLORIDE
     Dosage: 1 DF, BID
     Route: 048
     Dates: start: 20150328, end: 20150421
  10. NICERGOLINE [Concomitant]
     Active Substance: NICERGOLINE
     Dosage: 1 DF, QD
     Route: 048
     Dates: start: 20150409, end: 20150422
  11. ALFACALCIDOL [Concomitant]
     Active Substance: ALFACALCIDOL
     Dosage: 2 DF, QD
     Route: 048
     Dates: start: 20150415, end: 20150417

REACTIONS (4)
  - Dizziness [Unknown]
  - Skin haemorrhage [Unknown]
  - Haemorrhage [Unknown]
  - Thrombocytopenia [Recovered/Resolved]

NARRATIVE: CASE EVENT DATE: 20150417
